FAERS Safety Report 17797511 (Version 1)
Quarter: 2020Q2

REPORT INFORMATION
  Report Type: Spontaneous
  Country: US (occurrence: US)
  Receive Date: 20200515
  Receipt Date: 20200515
  Transmission Date: 20200714
  Serious: Yes (Hospitalization)
  Sender: FDA-Public Use
  Company Number: None

PATIENT
  Age: 65 Year
  Sex: Male
  Weight: 81.65 kg

DRUGS (1)
  1. CYCLOSPORINE 100MG [Suspect]
     Active Substance: CYCLOSPORINE
     Route: 048
     Dates: start: 20200327

REACTIONS (5)
  - Acute kidney injury [None]
  - Blood glucose increased [None]
  - Mood swings [None]
  - Renal impairment [None]
  - Oedema [None]

NARRATIVE: CASE EVENT DATE: 20200506
